FAERS Safety Report 9447964 (Version 1)
Quarter: 2013Q3

REPORT INFORMATION
  Report Type: Spontaneous
  Country: US (occurrence: None)
  Receive Date: 20130807
  Receipt Date: 20130807
  Transmission Date: 20140515
  Serious: Yes (Life-Threatening, Disabling)
  Sender: FDA-Public Use
  Company Number: None

PATIENT
  Age: 68 Year
  Sex: 0
  Weight: 93.44 kg

DRUGS (1)
  1. VITAMIN C [Suspect]
     Indication: NUTRITIONAL SUPPLEMENTATION
     Dosage: 1 PILLS THREE TIMES DAILY TAKEN BY MOUTH
     Route: 048
     Dates: start: 20111201, end: 20130124

REACTIONS (9)
  - Fatigue [None]
  - Alopecia [None]
  - Dizziness [None]
  - Rash [None]
  - Pruritus [None]
  - Dry skin [None]
  - Poor quality sleep [None]
  - Pain [None]
  - Trichorrhexis [None]
